FAERS Safety Report 7466381-X (Version None)
Quarter: 2011Q2

REPORT INFORMATION
  Report Type: 
  Country: None (occurrence: None)
  Receive Date: 20110509
  Receipt Date: 20100816
  Transmission Date: 20111010
  Serious: No
  Sender: FDA-Public Use
  Company Number: US-ALEXION-A201001002

PATIENT
  Sex: Male

DRUGS (7)
  1. MULTI-VITAMINS [Concomitant]
     Dosage: UNK
     Route: 048
  2. FOLIC ACID [Concomitant]
     Dosage: 1 MG, QD
     Route: 048
  3. SOLIRIS [Suspect]
     Dosage: 900 MG, Q2W
     Route: 042
  4. PRILOSEC [Concomitant]
     Dosage: 20 MG, QD
     Route: 048
  5. POTASSIUM [Concomitant]
     Dosage: 20 MEQ, BID
     Route: 048
  6. ARANESP [Concomitant]
     Dosage: UNK
  7. SOLIRIS [Suspect]
     Indication: PAROXYSMAL NOCTURNAL HAEMOGLOBINURIA
     Dosage: 600 MG, QW X 4
     Route: 042
     Dates: start: 20091010, end: 20090101

REACTIONS (2)
  - HAEMOGLOBIN DECREASED [None]
  - FATIGUE [None]
